FAERS Safety Report 9837977 (Version 3)
Quarter: 2014Q4

REPORT INFORMATION
  Report Type: Spontaneous
  Country: US (occurrence: None)
  Receive Date: 20131205
  Receipt Date: 20141010
  Transmission Date: 20150529
  Serious: Yes (Other)
  Sender: FDA-Public Use
  Company Number: 163-POMAL-13106074

PATIENT
  Age: 73 Year
  Sex: Male
  Weight: 73.94 kg

DRUGS (10)
  1. POMALYST [Suspect]
     Active Substance: POMALIDOMIDE
     Indication: PLASMA CELL MYELOMA
     Dosage: 4 MG, 1 IN 1 D, PO
     Route: 048
     Dates: start: 201309
  2. ACYCLOVIR (ACICLOVIR) (ACICLOVIR) [Concomitant]
     Active Substance: ACYCLOVIR
  3. PLAVIX [Concomitant]
     Active Substance: CLOPIDOGREL BISULFATE
  4. POTASSIUM [Concomitant]
     Active Substance: POTASSIUM
  5. TUMS [Concomitant]
     Active Substance: CALCIUM CARBONATE
  6. ZOMETA [Concomitant]
     Active Substance: ZOLEDRONIC ACID
  7. BENTYL (DICYCLOVERINE HYDROCHLORIDE) [Concomitant]
  8. CRESTOR [Concomitant]
     Active Substance: ROSUVASTATIN CALCIUM
  9. IMODIUM [Concomitant]
     Active Substance: LOPERAMIDE HYDROCHLORIDE
  10. INSULIN [Concomitant]
     Active Substance: INSULIN NOS

REACTIONS (4)
  - Dizziness [None]
  - Adverse drug reaction [None]
  - Somnolence [None]
  - Plasma cell myeloma [None]

NARRATIVE: CASE EVENT DATE: 2013
